FAERS Safety Report 5047315-4 (Version None)
Quarter: 2006Q3

REPORT INFORMATION
  Report Type: 
  Country: None (occurrence: None)
  Receive Date: 20060703
  Receipt Date: 20060619
  Transmission Date: 20061208
  Serious: Yes (Hospitalization)
  Sender: FDA-Public Use
  Company Number: 9039997-2006-00043

PATIENT

DRUGS (1)
  1. AMINOLEVULINIC ACID - POWDER [Suspect]
     Indication: BLADDER CANCER
     Dosage: 6%, 8%, OR 10%, ONCE, INSTI

REACTIONS (1)
  - URINARY TRACT INFECTION [None]
